FAERS Safety Report 21240297 (Version 1)
Quarter: 2022Q3

REPORT INFORMATION
  Report Type: Spontaneous
  Country: US (occurrence: None)
  Receive Date: 20220820
  Receipt Date: 20220820
  Transmission Date: 20221027
  Serious: Yes (Hospitalization)
  Sender: FDA-Public Use
  Company Number: None

PATIENT
  Age: 71 Year
  Sex: Male
  Weight: 86.55 kg

DRUGS (8)
  1. SUNITINIB [Suspect]
     Active Substance: SUNITINIB
     Indication: Hepatic cancer
     Dosage: 50MG QD 4W OF 6W PO?
     Route: 048
  2. ATORVASTATIN [Concomitant]
     Active Substance: ATORVASTATIN
  3. CARVEDILOL [Concomitant]
     Active Substance: CARVEDILOL
  4. VITAMINS [Concomitant]
     Active Substance: VITAMINS
  5. DICLOFENAC (TOPICAL) [Concomitant]
  6. GABAPENTIN [Concomitant]
     Active Substance: GABAPENTIN
  7. PANTOPRAZOLE [Concomitant]
     Active Substance: PANTOPRAZOLE
  8. SUCRALFATE [Concomitant]
     Active Substance: SUCRALFATE

REACTIONS (5)
  - Vomiting [None]
  - Gait disturbance [None]
  - Yellow skin [None]
  - Eating disorder [None]
  - Fall [None]

NARRATIVE: CASE EVENT DATE: 20220818
